FAERS Safety Report 18631529 (Version 1)
Quarter: 2020Q4

REPORT INFORMATION
  Report Type: Spontaneous
  Country: US (occurrence: US)
  Receive Date: 20201218
  Receipt Date: 20201218
  Transmission Date: 20210114
  Serious: Yes (Other)
  Sender: FDA-Public Use
  Company Number: US-SA-2020SA358909

PATIENT

DRUGS (3)
  1. DUPIXENT [Suspect]
     Active Substance: DUPILUMAB
     Dosage: 1 DF, 2 WEEK AFTER LOADING DOSE
  2. DUPIXENT [Suspect]
     Active Substance: DUPILUMAB
     Dosage: 300 MG, 3 RD DOSE ON NOV-7, YEAR UNSPECIFIED
  3. DUPIXENT [Suspect]
     Active Substance: DUPILUMAB
     Indication: ASTHMA
     Dosage: 600 MG, 1X, IN EARLY OCTOBER YEAR UNSPECIFIED

REACTIONS (12)
  - Therapeutic response unexpected [Unknown]
  - Tremor [Unknown]
  - Fine motor skill dysfunction [Unknown]
  - Hemiparaesthesia [Unknown]
  - Sensory disturbance [Unknown]
  - Speech disorder [Unknown]
  - Condition aggravated [Unknown]
  - Muscle spasms [Unknown]
  - Injection site rash [Unknown]
  - Gait disturbance [Unknown]
  - Drug hypersensitivity [Unknown]
  - Product use issue [Unknown]
